FAERS Safety Report 4965286-3 (Version None)
Quarter: 2006Q2

REPORT INFORMATION
  Report Type: 
  Country: None (occurrence: None)
  Receive Date: 20060406
  Receipt Date: 20051004
  Transmission Date: 20061013
  Serious: Yes (Hospitalization, Other)
  Sender: FDA-Public Use
  Company Number: US-MERCK-0510USA03473

PATIENT
  Sex: Male
  Weight: 130 kg

DRUGS (2)
  1. VIOXX [Suspect]
     Indication: BACK PAIN
     Route: 048
     Dates: start: 20020101, end: 20040101
  2. VIOXX [Suspect]
     Indication: PAIN IN EXTREMITY
     Route: 048
     Dates: start: 20020101, end: 20040101

REACTIONS (5)
  - CEREBRAL ARTERY EMBOLISM [None]
  - CHILLS [None]
  - DIZZINESS [None]
  - HERNIA [None]
  - PYREXIA [None]
